FAERS Safety Report 19906223 (Version 1)
Quarter: 2021Q4

REPORT INFORMATION
  Report Type: Spontaneous
  Country: US (occurrence: US)
  Receive Date: 20211001
  Receipt Date: 20211001
  Transmission Date: 20220303
  Serious: Yes (Other)
  Sender: FDA-Public Use
  Company Number: US-BAYER-2021A215802

PATIENT
  Age: 92 Year
  Sex: Female

DRUGS (1)
  1. ALEVE [Suspect]
     Active Substance: NAPROXEN SODIUM
     Indication: Pain
     Dosage: 1 DF
     Route: 048

REACTIONS (4)
  - Foreign body in throat [Unknown]
  - Chest discomfort [Unknown]
  - Dry mouth [Unknown]
  - Drug ineffective [Unknown]
